FAERS Safety Report 25610921 (Version 1)
Quarter: 2025Q3

REPORT INFORMATION
  Report Type: Spontaneous
  Country: US (occurrence: None)
  Receive Date: 20250725
  Receipt Date: 20250725
  Transmission Date: 20251021
  Serious: Yes (Death, Life-Threatening, Hospitalization)
  Sender: FDA-CTU
  Company Number: None

PATIENT
  Age: 80 Year
  Sex: Female
  Weight: 92.1 kg

DRUGS (10)
  1. LACOSAMIDE [Suspect]
     Active Substance: LACOSAMIDE
     Indication: Status epilepticus
     Route: 040
  2. ACETAMINOPHEN [Concomitant]
     Active Substance: ACETAMINOPHEN
  3. ALBUTEROL [Concomitant]
     Active Substance: ALBUTEROL
  4. Potassium + Sodium Phosphate [Concomitant]
  5. AMANTADINE [Concomitant]
     Active Substance: AMANTADINE
  6. LORAZEPAM [Concomitant]
     Active Substance: LORAZEPAM
  7. FENTANYL [Concomitant]
     Active Substance: FENTANYL
  8. MIDAZOLAM [Concomitant]
     Active Substance: MIDAZOLAM
  9. LEVETIRACETAM [Suspect]
     Active Substance: LEVETIRACETAM
  10. VALPROIC ACID [Suspect]
     Active Substance: VALPROIC ACID

REACTIONS (8)
  - Cardiac arrest [None]
  - Encephalopathy [None]
  - General physical health deterioration [None]
  - Seizure [None]
  - Status epilepticus [None]
  - Bradycardia [None]
  - Cardiac arrest [None]
  - Hypoxia [None]

NARRATIVE: CASE EVENT DATE: 20250615
